FAERS Safety Report 8511446-4 (Version None)
Quarter: 2012Q2

REPORT INFORMATION
  Report Type: 
  Country: None (occurrence: None)
  Receive Date: 20120629
  Receipt Date: 20120626
  Transmission Date: 20120825
  Serious: Yes (Other)
  Sender: FDA-Public Use
  Company Number: B0810791A

PATIENT
  Age: 50 Year
  Sex: Female

DRUGS (3)
  1. ORLISTAT [Suspect]
     Indication: WEIGHT DECREASED
     Dosage: UNK
  2. LACOSAMIDE [Suspect]
     Indication: PARTIAL SEIZURES
     Dosage: UNK
  3. VALPROATE SODIUM [Suspect]
     Indication: PARTIAL SEIZURES
     Dosage: UNK

REACTIONS (2)
  - MALNUTRITION [None]
  - CONVULSION [None]
